FAERS Safety Report 6106262-7 (Version None)
Quarter: 2009Q1

REPORT INFORMATION
  Report Type: 
  Country: None (occurrence: None)
  Receive Date: 20090306
  Receipt Date: 20090223
  Transmission Date: 20090719
  Serious: Yes (Other)
  Sender: FDA-Public Use
  Company Number: PHHY2009FR06742

PATIENT
  Sex: Female

DRUGS (1)
  1. TAREG [Suspect]
     Dosage: 80 MG, UNK

REACTIONS (5)
  - CARDIAC FAILURE [None]
  - DYSPNOEA [None]
  - EOSINOPHIL COUNT INCREASED [None]
  - HYPERSENSITIVITY [None]
  - MYOCARDITIS [None]
